APPROVED DRUG PRODUCT: KYRA
Active Ingredient: DROSPIRENONE; ETHINYL ESTRADIOL
Strength: 3MG;0.02MG
Dosage Form/Route: TABLET;ORAL
Application: A202318 | Product #001
Applicant: SUN PHARMACEUTICAL INDUSTRIES LTD
Approved: Jul 23, 2019 | RLD: No | RS: No | Type: DISCN